FAERS Safety Report 19856181 (Version 1)
Quarter: 2021Q3

REPORT INFORMATION
  Report Type: Spontaneous
  Country: DE (occurrence: DE)
  Receive Date: 20210920
  Receipt Date: 20210920
  Transmission Date: 20211014
  Serious: Yes (Congenital Anomaly, Other)
  Sender: FDA-Public Use
  Company Number: DE-TEVA-2021-DE-1953138

PATIENT
  Age: 0 Year
  Sex: Female

DRUGS (3)
  1. FOLSAURE ABZ [Concomitant]
     Indication: VITAMIN SUPPLEMENTATION
     Dosage: 5 MILLIGRAM DAILY; ADDITIONAL INFO :15.5. ? 39.4. GESTATIONAL WEEK
     Route: 064
     Dates: start: 20200605, end: 20201119
  2. LEVETIRACETAM. [Suspect]
     Active Substance: LEVETIRACETAM
     Indication: TEMPORAL LOBE EPILEPSY
     Dosage: 3500 [MG / D (UP TO 2500)] , ADDITIONAL INFO : 0. ? 39.5. GESTATIONAL WEEK
     Route: 064
     Dates: start: 20200216, end: 20201120
  3. BOOSTRIX [Concomitant]
     Active Substance: TETANUS TOXOID, REDUCED DIPHTHERIA TOXOID AND ACELLULAR PERTUSSIS VACCINE, ADSORBED ANTIGENS
     Indication: IMMUNISATION
     Dosage: ADDITIONAL INFO : 30.1. ? 30.1. GESTATIONAL WEEK
     Route: 064
     Dates: start: 20200914, end: 20200914

REACTIONS (3)
  - Lymphangioma [Unknown]
  - Foetal exposure during pregnancy [Unknown]
  - Ankyloglossia congenital [Unknown]

NARRATIVE: CASE EVENT DATE: 20200216
